FAERS Safety Report 24543815 (Version 1)
Quarter: 2024Q4

REPORT INFORMATION
  Report Type: Spontaneous
  Country: ES (occurrence: ES)
  Receive Date: 20241024
  Receipt Date: 20241024
  Transmission Date: 20250114
  Serious: Yes (Hospitalization)
  Sender: TEVA
  Company Number: None

PATIENT
  Age: 35 Year
  Sex: Female

DRUGS (8)
  1. FENTANYL [Suspect]
     Active Substance: FENTANYL
     Indication: Fibromyalgia
     Dosage: 1.0 PATCH EVERY 72 HOURS, 12 MICROGRAMS/H
     Route: 062
     Dates: start: 20230902, end: 20230912
  2. PREMAX [Concomitant]
     Indication: Somatic symptom disorder
     Dosage: EFG TABLETS 56 TABLETS
     Route: 048
     Dates: start: 20230209
  3. OLANZAPINA TARBIS FARMA [Concomitant]
     Indication: Somatic symptom disorder
     Dosage: EFG, 28 TABLETS
     Route: 048
     Dates: start: 20230716
  4. MIRTAZAPINE [Concomitant]
     Active Substance: MIRTAZAPINE
     Indication: Back pain
     Dosage: 15.0 MG/24 H NOC, EFG, 60 TABLETS
     Route: 048
     Dates: start: 20210823
  5. DIAZEPAM [Concomitant]
     Active Substance: DIAZEPAM
     Indication: Pain
     Dosage: 10.0 MG A-DECOCE, EFG TABLETS, 30 TABLETS
     Route: 048
     Dates: start: 20230331
  6. CHOLECALCIFEROL [Concomitant]
     Active Substance: CHOLECALCIFEROL
     Indication: Myalgia
     Dosage: 25000.0 IU/30 DAYS, 4 CAPSULES
     Route: 048
     Dates: start: 20220214
  7. DULOXETINA CINFAMED [Concomitant]
     Indication: Scoliosis
     Dosage: 30.0 MG A-DECE, GASTRORE-RESISTANT HARD CAPSULES EFG, 28 CAPSULES
     Route: 048
     Dates: start: 20210515
  8. DULOXETINA CINFAMED [Concomitant]
     Indication: Scoliosis
     Dosage: 60.0 MG OF, GASTRORE-RESISTANT HARD CAPSULES EFG, 56 CAPSULES
     Route: 048
     Dates: start: 20210824

REACTIONS (1)
  - Urinary retention [Recovered/Resolved]

NARRATIVE: CASE EVENT DATE: 20230912
